FAERS Safety Report 5041703-8 (Version None)
Quarter: 2006Q2

REPORT INFORMATION
  Report Type: 
  Country: None (occurrence: None)
  Receive Date: 20060630
  Receipt Date: 20060615
  Transmission Date: 20061013
  Serious: Yes (Other)
  Sender: FDA-Public Use
  Company Number: 2006-DE-03142GD

PATIENT
  Age: 29 Year
  Sex: Female

DRUGS (2)
  1. ZIDOVUDINE [Suspect]
     Indication: HIV INFECTION
     Dosage: IV
     Route: 042
  2. ANTIBIOTICS [Concomitant]

REACTIONS (5)
  - DRUG EXPOSURE DURING PREGNANCY [None]
  - HUMAN IMMUNODEFICIENCY VIRUS TRANSMISSION [None]
  - MATERNAL CONDITION AFFECTING FOETUS [None]
  - PREMATURE LABOUR [None]
  - PREMATURE RUPTURE OF MEMBRANES [None]
